FAERS Safety Report 9196287 (Version 2)
Quarter: 2013Q2

REPORT INFORMATION
  Report Type: Report from Study
  Country: US (occurrence: US)
  Receive Date: 20130328
  Receipt Date: 20130417
  Transmission Date: 20140414
  Serious: Yes (Hospitalization, Other)
  Sender: FDA-Public Use
  Company Number: US-ELI_LILLY_AND_COMPANY-US201303007205

PATIENT
  Age: 53 Year
  Sex: Male
  Weight: 61.22 kg

DRUGS (8)
  1. PRASUGREL HYDROCHLORIDE [Suspect]
     Indication: ACUTE CORONARY SYNDROME
     Dosage: 5 MG, QD
     Dates: start: 20110309, end: 20120412
  2. PRASUGREL HYDROCHLORIDE [Suspect]
     Indication: ACUTE CORONARY SYNDROME
     Dosage: 5 MG, QD
     Dates: start: 20120412, end: 20130310
  3. ASPIRIN [Concomitant]
     Dosage: 325 MG, SINGLE
     Dates: start: 20110309, end: 20110309
  4. ASPIRIN [Concomitant]
     Dosage: 81 MG, QD
  5. ASPIRIN [Concomitant]
     Dosage: 325 MG, QD
  6. ASPIRIN [Concomitant]
     Dosage: 81 MG, QD
  7. LISINOPRIL [Concomitant]
     Indication: MYOCARDIAL INFARCTION
     Dosage: 2.5 MG, QD
     Route: 048
     Dates: start: 20110309
  8. SIMVASTATIN [Concomitant]
     Indication: HYPERCHOLESTEROLAEMIA
     Dosage: 40 MG, QD
     Route: 048
     Dates: start: 20110309

REACTIONS (1)
  - Gastric ulcer haemorrhage [Recovered/Resolved with Sequelae]
